FAERS Safety Report 6367704-5 (Version None)
Quarter: 2009Q3

REPORT INFORMATION
  Report Type: 
  Country: None (occurrence: None)
  Receive Date: 20090921
  Receipt Date: 20090908
  Transmission Date: 20100115
  Serious: Yes (Other)
  Sender: FDA-Public Use
  Company Number: US-PFIZER INC-2009269908

PATIENT
  Sex: Female

DRUGS (3)
  1. ALPRAZOLAM [Suspect]
     Indication: CONVULSION
  2. ALPRAZOLAM [Suspect]
     Indication: NEUROMYOPATHY
  3. DILANTIN [Concomitant]

REACTIONS (4)
  - DISTURBANCE IN ATTENTION [None]
  - HYPERSENSITIVITY [None]
  - IMMUNE SYSTEM DISORDER [None]
  - VISUAL ACUITY REDUCED [None]
